FAERS Safety Report 20383430 (Version 6)
Quarter: 2022Q2

REPORT INFORMATION
  Report Type: Report from Study
  Country: CA (occurrence: None)
  Receive Date: 20220127
  Receipt Date: 20220524
  Transmission Date: 20220721
  Serious: Yes (Hospitalization)
  Sender: FDA-Public Use
  Company Number: 2022A033549

PATIENT
  Sex: Female

DRUGS (1)
  1. IMFINZI [Suspect]
     Active Substance: DURVALUMAB
     Indication: Small cell lung cancer extensive stage
     Route: 042
     Dates: start: 20211208

REACTIONS (6)
  - Sepsis [Unknown]
  - Febrile neutropenia [Unknown]
  - Empyema [Unknown]
  - Chronic obstructive pulmonary disease [Unknown]
  - Pleural effusion [Not Recovered/Not Resolved]
  - Infection [Unknown]
